FAERS Safety Report 9915062 (Version 1)
Quarter: 2014Q1

REPORT INFORMATION
  Report Type: Report from Study
  Country: NL (occurrence: NL)
  Receive Date: 20140220
  Receipt Date: 20140220
  Transmission Date: 20141002
  Serious: Yes (Hospitalization, Other)
  Sender: FDA-Public Use
  Company Number: NL-ASTRAZENECA-2014SE11154

PATIENT
  Age: 81 Year
  Sex: Female

DRUGS (14)
  1. TICAGRELOR [Suspect]
     Indication: ACUTE CORONARY SYNDROME
     Route: 048
     Dates: start: 20130909
  2. ASCAL [Suspect]
     Indication: ACUTE CORONARY SYNDROME
     Route: 048
     Dates: start: 20130909
  3. NORVASC [Concomitant]
  4. ATORVASTATINE [Concomitant]
  5. EMCOR [Concomitant]
  6. CACIT [Concomitant]
  7. FENTANYL [Concomitant]
  8. VALSARTAN [Concomitant]
  9. MOVICOLON [Concomitant]
  10. IMPORTAL [Concomitant]
  11. COZAAR [Concomitant]
  12. PANTOZOL [Concomitant]
  13. PARACETAMOL [Concomitant]
  14. ZOCOR [Concomitant]

REACTIONS (2)
  - Angina unstable [Recovered/Resolved]
  - Acute myocardial infarction [Recovered/Resolved]
